FAERS Safety Report 6250684-0 (Version None)
Quarter: 2009Q2

REPORT INFORMATION
  Report Type: 
  Country: None (occurrence: None)
  Receive Date: 20090630
  Receipt Date: 20090622
  Transmission Date: 20091009
  Serious: Yes (Hospitalization)
  Sender: FDA-Public Use
  Company Number: DE-WYE-H09845209

PATIENT
  Sex: Male

DRUGS (19)
  1. SIROLIMUS [Suspect]
     Indication: PROPHYLAXIS AGAINST TRANSPLANT REJECTION
     Route: 048
     Dates: start: 20031007, end: 20031008
  2. SIROLIMUS [Suspect]
     Route: 048
     Dates: start: 20031009, end: 20031011
  3. SIROLIMUS [Suspect]
     Route: 048
     Dates: start: 20031012, end: 20031001
  4. SIROLIMUS [Suspect]
     Route: 048
     Dates: start: 20031001, end: 20040322
  5. SIROLIMUS [Suspect]
     Route: 048
     Dates: start: 20040323, end: 20040709
  6. MYCOPHENOLATE MOFETIL [Suspect]
     Indication: PROPHYLAXIS AGAINST TRANSPLANT REJECTION
     Dosage: DOSE VARIED
     Route: 048
     Dates: start: 20031007, end: 20040324
  7. MYCOPHENOLATE MOFETIL [Suspect]
     Route: 048
     Dates: start: 20040404, end: 20040404
  8. MYCOPHENOLATE MOFETIL [Suspect]
     Route: 048
     Dates: start: 20040405
  9. METHYLPREDNISOLONE [Suspect]
     Indication: PROPHYLAXIS AGAINST TRANSPLANT REJECTION
     Route: 048
     Dates: start: 20031006, end: 20031006
  10. METHYLPREDNISOLONE [Suspect]
     Dosage: DOSE VARIED
     Route: 042
     Dates: start: 20031007, end: 20040311
  11. PRAVASTATIN SODIUM [Concomitant]
     Dosage: UNSPECIFIED
     Dates: start: 20031008
  12. DOXAZOSIN MESYLATE [Concomitant]
  13. BELOC ZOK [Concomitant]
     Dosage: UNSPECIFIED
  14. ACETYLSALICYLIC ACID [Concomitant]
     Dosage: UNSPECIFIED
     Dates: start: 20031011
  15. AMLODIPINE [Concomitant]
     Dosage: UNSPECIFIED
     Dates: start: 20031118
  16. DARBEPOETIN ALFA [Concomitant]
     Dosage: UNSPECIFIED
     Dates: start: 20031015, end: 20040728
  17. METOPROLOL SUCCINATE [Concomitant]
     Dosage: UNSPECIFIED
     Dates: start: 20031008
  18. DACLIZUMAB [Suspect]
     Indication: PROPHYLAXIS AGAINST TRANSPLANT REJECTION
     Dosage: DOSE VARIED
     Route: 042
     Dates: start: 20031006, end: 20031203
  19. VESDIL [Concomitant]
     Dosage: UNSPECIFIED
     Dates: start: 20031019, end: 20040701

REACTIONS (3)
  - CYTOMEGALOVIRUS INFECTION [None]
  - GASTRIC ULCER [None]
  - GASTRITIS [None]
